FAERS Safety Report 26123703 (Version 1)
Quarter: 2025Q4

REPORT INFORMATION
  Report Type: Spontaneous
  Country: US (occurrence: US)
  Receive Date: 20251205
  Receipt Date: 20251205
  Transmission Date: 20260118
  Serious: Yes (Hospitalization, Other)
  Sender: STRIDES
  Company Number: US-STRIDES ARCOLAB LIMITED-2025SP014916

PATIENT
  Age: 82 Year
  Sex: Male

DRUGS (15)
  1. PREDNISOLONE [Suspect]
     Active Substance: PREDNISOLONE
     Indication: CD30 expression
     Dosage: CHOP REGIMEN
     Route: 065
  2. PREDNISOLONE [Suspect]
     Active Substance: PREDNISOLONE
     Indication: T-cell lymphoma
  3. PREDNISOLONE [Suspect]
     Active Substance: PREDNISOLONE
     Indication: Anaplastic large cell lymphoma T- and null-cell types
  4. DOXORUBICIN [Suspect]
     Active Substance: DOXORUBICIN
     Indication: CD30 expression
     Dosage: CHOP REGIMEN
     Route: 065
  5. DOXORUBICIN [Suspect]
     Active Substance: DOXORUBICIN
     Indication: T-cell lymphoma
  6. DOXORUBICIN [Suspect]
     Active Substance: DOXORUBICIN
     Indication: Anaplastic large cell lymphoma T- and null-cell types
  7. CYCLOPHOSPHAMIDE [Suspect]
     Active Substance: CYCLOPHOSPHAMIDE
     Indication: CD30 expression
     Dosage: CHOP REGIMEN
     Route: 065
  8. CYCLOPHOSPHAMIDE [Suspect]
     Active Substance: CYCLOPHOSPHAMIDE
     Indication: Anaplastic large cell lymphoma T- and null-cell types
  9. CYCLOPHOSPHAMIDE [Suspect]
     Active Substance: CYCLOPHOSPHAMIDE
     Indication: T-cell lymphoma
  10. VINCRISTINE [Suspect]
     Active Substance: VINCRISTINE
     Indication: CD30 expression
     Dosage: CHOP REGIMEN
     Route: 065
  11. VINCRISTINE [Suspect]
     Active Substance: VINCRISTINE
     Indication: Anaplastic large cell lymphoma T- and null-cell types
  12. VINCRISTINE [Suspect]
     Active Substance: VINCRISTINE
     Indication: T-cell lymphoma
  13. BRENTUXIMAB [Suspect]
     Active Substance: BRENTUXIMAB
     Indication: CD30 expression
     Dosage: UNK
     Route: 065
  14. BRENTUXIMAB [Suspect]
     Active Substance: BRENTUXIMAB
     Indication: T-cell lymphoma
  15. BRENTUXIMAB [Suspect]
     Active Substance: BRENTUXIMAB
     Indication: Anaplastic large cell lymphoma T- and null-cell types

REACTIONS (3)
  - Gastrointestinal toxicity [Unknown]
  - Pancytopenia [Unknown]
  - Neoplasm progression [Unknown]
